FAERS Safety Report 12257302 (Version 1)
Quarter: 2016Q2

REPORT INFORMATION
  Report Type: Report from Study
  Country: US (occurrence: US)
  Receive Date: 20160412
  Receipt Date: 20160412
  Transmission Date: 20160815
  Serious: Yes (Other)
  Sender: FDA-Public Use
  Company Number: US-BIOGEN-2016BI00219672

PATIENT
  Sex: Female

DRUGS (1)
  1. TYSABRI [Suspect]
     Active Substance: NATALIZUMAB
     Indication: EXPOSURE VIA FATHER
     Dosage: INFUSED OVER 1 HOUR
     Dates: start: 20150518

REACTIONS (3)
  - Amniotic fluid volume decreased [Recovered/Resolved]
  - Exposure via father [Recovered/Resolved]
  - Breech presentation [Recovered/Resolved]
